FAERS Safety Report 7236824-5 (Version None)
Quarter: 2011Q1

REPORT INFORMATION
  Report Type: 
  Country: None (occurrence: None)
  Receive Date: 20110120
  Receipt Date: 20110114
  Transmission Date: 20110831
  Serious: Yes (Hospitalization)
  Sender: FDA-Public Use
  Company Number: US-AMGEN-USASP2011002486

PATIENT

DRUGS (2)
  1. METHOTREXATE [Concomitant]
  2. ENBREL [Suspect]
     Indication: RHEUMATOID ARTHRITIS
     Dates: start: 20101027

REACTIONS (4)
  - MOBILITY DECREASED [None]
  - INCONTINENCE [None]
  - DIABETIC NEUROPATHY [None]
  - APHAGIA [None]
